FAERS Safety Report 8396835-3 (Version None)
Quarter: 2012Q2

REPORT INFORMATION
  Report Type: 
  Country: None (occurrence: None)
  Receive Date: 20120530
  Receipt Date: 20120529
  Transmission Date: 20120825
  Serious: Yes (Disabling, Other)
  Sender: FDA-Public Use
  Company Number: US-PFIZER INC-2012117269

PATIENT
  Sex: Female
  Weight: 92.971 kg

DRUGS (5)
  1. EFFEXOR XR [Suspect]
     Indication: ANXIETY
     Dosage: 150 MG, 1X/DAY
     Route: 048
  2. ASPIRIN [Concomitant]
     Dosage: 325 MG, UNK
  3. EFFEXOR XR [Suspect]
     Indication: PANIC DISORDER
     Dosage: UNK, 1X/DAY
     Route: 048
  4. XANAX [Suspect]
     Indication: PANIC DISORDER
     Dosage: 0.5 MG, AS NEEDED
     Route: 048
  5. EFFEXOR XR [Suspect]
     Indication: DEPRESSION
     Dosage: 225 MG, 1X/DAY (ONE OF 150MG AND ONE OF 75MG)
     Route: 048

REACTIONS (10)
  - PANIC ATTACK [None]
  - DIABETES MELLITUS [None]
  - URTICARIA [None]
  - BLOOD CHOLESTEROL INCREASED [None]
  - PANIC DISORDER [None]
  - NERVOUSNESS [None]
  - WITHDRAWAL SYNDROME [None]
  - NAUSEA [None]
  - HYPERTENSION [None]
  - SYNCOPE [None]
